FAERS Safety Report 20705600 (Version 1)
Quarter: 2022Q2

REPORT INFORMATION
  Report Type: Spontaneous
  Country: FR (occurrence: FR)
  Receive Date: 20220413
  Receipt Date: 20220413
  Transmission Date: 20220721
  Serious: Yes (Hospitalization)
  Sender: FDA-Public Use
  Company Number: None

PATIENT
  Age: 54 Year
  Sex: Male
  Weight: 66 kg

DRUGS (1)
  1. VFEND [Suspect]
     Active Substance: VORICONAZOLE
     Indication: Aspergillus infection
     Dosage: 260 MG
     Route: 042
     Dates: start: 20220306, end: 20220308

REACTIONS (1)
  - Extravasation [Not Recovered/Not Resolved]

NARRATIVE: CASE EVENT DATE: 20220306
